FAERS Safety Report 8795145 (Version 1)
Quarter: 2012Q4

REPORT INFORMATION
  Report Type: 
  Country: US (occurrence: US)
  Receive Date: 20120917
  Receipt Date: 20120917
  Transmission Date: 20130627
  Serious: Yes (Death)
  Sender: FDA-Public Use
  Company Number: US-AMGEN-USASP2012057979

PATIENT
  Age: 87 Year
  Sex: Female

DRUGS (2)
  1. PROCRIT [Suspect]
     Indication: PRODUCT USED FOR UNKNOWN INDICATION
     Dosage: 20000 IU, UNK
  2. PROCRIT [Suspect]
     Dosage: 40000 IU, UNK

REACTIONS (1)
  - Death [Fatal]
